FAERS Safety Report 19483612 (Version 1)
Quarter: 2021Q3

REPORT INFORMATION
  Report Type: Spontaneous
  Country: US (occurrence: US)
  Receive Date: 20210701
  Receipt Date: 20210701
  Transmission Date: 20211014
  Serious: No
  Sender: FDA-Public Use
  Company Number: US-ROCHE-2572127

PATIENT
  Sex: Male
  Weight: 108.96 kg

DRUGS (5)
  1. KEPPRA [Concomitant]
     Active Substance: LEVETIRACETAM
     Indication: NEUROPATHY PERIPHERAL
     Dosage: ONGOING:NO
     Dates: end: 2017
  2. KLONOPIN [Suspect]
     Active Substance: CLONAZEPAM
     Dosage: ONGOING: NO
     Route: 048
     Dates: start: 2007, end: 201805
  3. KLONOPIN [Suspect]
     Active Substance: CLONAZEPAM
     Indication: MUSCLE SPASMS
     Dosage: NO
     Route: 048
     Dates: start: 2010, end: 2019
  4. KLONOPIN [Suspect]
     Active Substance: CLONAZEPAM
     Dosage: ONGOING:NO
     Route: 048
     Dates: start: 201806, end: 20190401
  5. MORPHINE [Concomitant]
     Active Substance: MORPHINE
     Dosage: ONGOING:NO
     Route: 048
     Dates: end: 2014

REACTIONS (13)
  - Hypoaesthesia [Not Recovered/Not Resolved]
  - Dysphagia [Not Recovered/Not Resolved]
  - Bruxism [Not Recovered/Not Resolved]
  - Off label use [Unknown]
  - Withdrawal syndrome [Recovered/Resolved]
  - Paraesthesia [Not Recovered/Not Resolved]
  - Tinnitus [Not Recovered/Not Resolved]
  - Compulsive lip biting [Not Recovered/Not Resolved]
  - Foot deformity [Not Recovered/Not Resolved]
  - Hyperhidrosis [Not Recovered/Not Resolved]
  - Malaise [Recovered/Resolved]
  - Blood pressure increased [Recovered/Resolved]
  - Intentional product use issue [Unknown]

NARRATIVE: CASE EVENT DATE: 2018
